FAERS Safety Report 8773197 (Version 9)
Quarter: 2015Q2

REPORT INFORMATION
  Report Type: Report from Study
  Country: RO (occurrence: RO)
  Receive Date: 20120907
  Receipt Date: 20150522
  Transmission Date: 20150821
  Serious: Yes (Hospitalization)
  Sender: FDA-Public Use
  Company Number: RO-ROCHE-1118294

PATIENT
  Age: 67 Year
  Sex: Female
  Weight: 37 kg

DRUGS (11)
  1. VEMURAFENIB [Suspect]
     Active Substance: VEMURAFENIB
     Route: 048
     Dates: start: 20120711, end: 20120730
  2. METFORMIN [Concomitant]
     Active Substance: METFORMIN HYDROCHLORIDE
     Route: 065
     Dates: start: 2012
  3. ULTRACOD [Concomitant]
     Route: 065
     Dates: start: 20100520
  4. GABAPENTINUM [Concomitant]
     Route: 065
     Dates: start: 2010
  5. GLIMEPIRIDUM [Concomitant]
     Route: 065
     Dates: start: 2002
  6. ATORVASTATINUM [Concomitant]
     Route: 065
     Dates: start: 2010
  7. CLOPIDOGREL [Concomitant]
     Active Substance: CLOPIDOGREL BISULFATE
     Route: 065
     Dates: start: 2011
  8. VEMURAFENIB [Suspect]
     Active Substance: VEMURAFENIB
     Indication: METASTATIC MALIGNANT MELANOMA
     Route: 048
     Dates: start: 20120511, end: 20120618
  9. ISOSORBID MONONITRAT [Concomitant]
     Route: 065
     Dates: start: 2010
  10. ZOFENOPRIL [Concomitant]
     Active Substance: ZOFENOPRIL
     Route: 065
     Dates: start: 2010
  11. VEMURAFENIB [Suspect]
     Active Substance: VEMURAFENIB
     Dosage: LAST DOSE PRIOR TO SAE: 09/JUL/2012
     Route: 048
     Dates: start: 20120619

REACTIONS (1)
  - Cachexia [Recovered/Resolved with Sequelae]

NARRATIVE: CASE EVENT DATE: 20120726
